FAERS Safety Report 22383705 (Version 2)
Quarter: 2024Q1

REPORT INFORMATION
  Report Type: Spontaneous
  Country: JP (occurrence: JP)
  Receive Date: 20230530
  Receipt Date: 20240129
  Transmission Date: 20240410
  Serious: Yes (Other)
  Sender: FDA-Public Use
  Company Number: JP-SUN PHARMACEUTICAL INDUSTRIES LTD-2023R1-389703

PATIENT
  Age: 59 Year
  Sex: Male

DRUGS (1)
  1. SUNITINIB [Suspect]
     Active Substance: SUNITINIB
     Indication: Chemotherapy
     Dosage: UNK
     Route: 065

REACTIONS (3)
  - Clear cell renal cell carcinoma [Unknown]
  - Drug ineffective [Unknown]
  - Disease progression [Unknown]
